FAERS Safety Report 8325573-8 (Version None)
Quarter: 2012Q2

REPORT INFORMATION
  Report Type: 
  Country: None (occurrence: None)
  Receive Date: 20120501
  Receipt Date: 20120418
  Transmission Date: 20120825
  Serious: Yes (Death, Hospitalization)
  Sender: FDA-Public Use
  Company Number: CN-JNJFOC-20111209571

PATIENT
  Sex: Male

DRUGS (4)
  1. REMICADE [Suspect]
     Indication: PUSTULAR PSORIASIS
     Dosage: DOSE INTERVAL: 60 (UNSPECIFIED)
     Route: 042
     Dates: start: 20111207, end: 20111207
  2. METHOTREXATE [Concomitant]
     Indication: PUSTULAR PSORIASIS
     Route: 041
     Dates: start: 20111209, end: 20111210
  3. METHYLPREDNISOLONE [Concomitant]
     Indication: PUSTULAR PSORIASIS
     Route: 041
     Dates: start: 20111210, end: 20111218
  4. DEXAMETHASONE [Concomitant]
     Indication: PUSTULAR PSORIASIS
     Route: 041
     Dates: start: 20111130, end: 20111206

REACTIONS (4)
  - HYPERKALAEMIA [None]
  - SEPSIS [None]
  - RESPIRATORY FAILURE [None]
  - METABOLIC ACIDOSIS [None]
